FAERS Safety Report 19029926 (Version 2)
Quarter: 2021Q1

REPORT INFORMATION
  Report Type: Spontaneous
  Country: PL (occurrence: PL)
  Receive Date: 20210318
  Receipt Date: 20210323
  Transmission Date: 20210420
  Serious: Yes (Other)
  Sender: FDA-Public Use
  Company Number: NVSC2021PL054609

PATIENT
  Age: 65 Year
  Sex: Female

DRUGS (4)
  1. DOCETAXEL. [Suspect]
     Active Substance: DOCETAXEL
     Indication: LUNG ADENOCARCINOMA STAGE III
     Dosage: 75 MG/M2, 21D(Q3W), 5 COURSES
     Route: 042
     Dates: start: 201810
  2. NINTEDANIB [Concomitant]
     Active Substance: NINTEDANIB
     Indication: LUNG ADENOCARCINOMA STAGE III
     Dosage: 200 MG QD (2X200 MG ON THE 2ND?21ST DAY OF THE CYCLE)
     Route: 048
     Dates: start: 201810, end: 201907
  3. PEGFILGRASTIM [Suspect]
     Active Substance: PEGFILGRASTIM
     Indication: PROPHYLAXIS
     Dosage: UNK
     Route: 065
     Dates: start: 201810, end: 201907
  4. NINTEDANIB [Concomitant]
     Active Substance: NINTEDANIB
     Dosage: 200 MG, Q12H (ON THE 2ND?21ST DAY OF THE CYCLE)
     Route: 048

REACTIONS (9)
  - Alanine aminotransferase increased [Recovered/Resolved]
  - Transaminases increased [Recovered/Resolved]
  - Diarrhoea [Unknown]
  - Adenocarcinoma [Unknown]
  - Application site infection [Unknown]
  - Metastases to adrenals [Unknown]
  - Aspartate aminotransferase increased [Recovered/Resolved]
  - Bacterial infection [Unknown]
  - Catheter site infection [Unknown]

NARRATIVE: CASE EVENT DATE: 201907
